FAERS Safety Report 6409772-8 (Version None)
Quarter: 2009Q4

REPORT INFORMATION
  Report Type: 
  Country: None (occurrence: None)
  Receive Date: 20091022
  Receipt Date: 20091013
  Transmission Date: 20100525
  Serious: Yes (Hospitalization)
  Sender: FDA-Public Use
  Company Number: SE-ASTRAZENECA-2009SE19794

PATIENT
  Age: 74 Year
  Sex: Female

DRUGS (14)
  1. FELODIPINE [Suspect]
     Indication: HYPERTONIA
     Route: 048
     Dates: start: 20090402, end: 20090507
  2. OXIS TURBUHALER [Concomitant]
     Dosage: 9 UG/DOS
     Route: 055
  3. SPIRIVA [Concomitant]
     Route: 055
  4. COZAAR [Concomitant]
  5. KALCIPOS-D [Concomitant]
     Dosage: 500 MG/400 IU
  6. ALENAT VECKOTABLETT [Concomitant]
  7. ALVEDON [Concomitant]
  8. ESIDRIX [Concomitant]
  9. THERALEN [Concomitant]
     Dosage: 40 MG/ML
     Route: 048
  10. KALEORID [Concomitant]
  11. PREDNISOLONE [Concomitant]
  12. FUCITHALMIC [Concomitant]
  13. STILNOCT [Concomitant]
  14. CANODERM [Concomitant]

REACTIONS (1)
  - OEDEMA [None]
